FAERS Safety Report 16581670 (Version 1)
Quarter: 2019Q3

REPORT INFORMATION
  Report Type: Spontaneous
  Country: US (occurrence: US)
  Receive Date: 20190603
  Receipt Date: 20190603
  Transmission Date: 20191004
  Serious: No
  Sender: FDA-Public Use
  Company Number: None

PATIENT
  Age: 60 Year
  Sex: Female

DRUGS (1)
  1. COSENTYX [Suspect]
     Active Substance: SECUKINUMAB
     Indication: PSORIATIC ARTHROPATHY
     Dosage: ?INJECT 300MG (2 SYRINGES) SUBCUTANEOUSLY  EVERY WEEK FOR 5 WEEKS  AS DIRECTED?
     Route: 058
     Dates: start: 201809

REACTIONS (1)
  - Rash [None]
